FAERS Safety Report 4979530-X (Version None)
Quarter: 2006Q2

REPORT INFORMATION
  Report Type: 
  Country: None (occurrence: None)
  Receive Date: 20060418
  Receipt Date: 20060403
  Transmission Date: 20061013
  Serious: Yes (Life-Threatening, Hospitalization, Other)
  Sender: FDA-Public Use
  Company Number: AT200603000494

PATIENT
  Age: 76 Year
  Sex: Female

DRUGS (6)
  1. YENTREVE (DULOXETINE HYDROCHLORIDE) [Suspect]
     Indication: STRESS INCONTINENCE
  2. BETASERC /NET/ (BETAHISTINE HYDROCHLORIDE) [Concomitant]
  3. VERAPAMIL HCL [Concomitant]
  4. TEBOFORTAN (GINKGO BILOBA) [Concomitant]
  5. COSOPT [Concomitant]
  6. ACETYLSALICYLIC ACID SRT [Concomitant]

REACTIONS (15)
  - ASTHENIA [None]
  - BLOOD BILIRUBIN INCREASED [None]
  - BLOOD CHLORIDE DECREASED [None]
  - BLOOD CREATINE PHOSPHOKINASE INCREASED [None]
  - BLOOD ELECTROLYTES DECREASED [None]
  - BLOOD GLUCOSE INCREASED [None]
  - BLOOD OSMOLARITY DECREASED [None]
  - BLOOD PHOSPHORUS DECREASED [None]
  - HYPOKALAEMIA [None]
  - HYPONATRAEMIA [None]
  - LEUKOCYTOSIS [None]
  - NAUSEA [None]
  - NEUTROPHIL COUNT INCREASED [None]
  - SOMNOLENCE [None]
  - VOMITING [None]
